FAERS Safety Report 7892558-5 (Version None)
Quarter: 2011Q4

REPORT INFORMATION
  Report Type: 
  Country: None (occurrence: None)
  Receive Date: 20111104
  Receipt Date: 20111025
  Transmission Date: 20120403
  Serious: Yes (Hospitalization, Other)
  Sender: FDA-Public Use
  Company Number: US-BAYER-2011-072437

PATIENT
  Age: 22 Year
  Sex: Female

DRUGS (6)
  1. HYDROCHLOROTHIAZIDE [Concomitant]
     Indication: HYPERTENSION
     Dosage: UNK UNK, QD
     Route: 048
     Dates: start: 20030710, end: 20100614
  2. GLUCOPHAGE [Concomitant]
     Indication: HYPERINSULINAEMIA
     Dosage: 500 MG, BID
     Route: 048
     Dates: start: 20020919, end: 20100614
  3. ATENOLOL [Concomitant]
     Indication: HYPERTENSION
     Dosage: 25 MG, QD
     Route: 048
     Dates: start: 20030725, end: 20100412
  4. YAZ [Suspect]
     Dosage: UNK
     Route: 048
     Dates: start: 20070808, end: 20100111
  5. KARIVA [Concomitant]
  6. ALBUTEROL [Concomitant]
     Indication: ASTHMA
     Dosage: UNK UNK, PRN
     Dates: start: 20011002

REACTIONS (6)
  - BILIARY DYSKINESIA [None]
  - GALLBLADDER CHOLESTEROLOSIS [None]
  - VOMITING [None]
  - NAUSEA [None]
  - ABDOMINAL PAIN [None]
  - DIARRHOEA [None]
